FAERS Safety Report 5133666-1 (Version None)
Quarter: 2006Q4

REPORT INFORMATION
  Report Type: 
  Country: None (occurrence: None)
  Receive Date: 20061024
  Receipt Date: 20061013
  Transmission Date: 20070319
  Serious: Yes (Hospitalization, Disabling, Other)
  Sender: FDA-Public Use
  Company Number: 2006SE05520

PATIENT
  Age: 34 Year
  Sex: Male
  Weight: 70 kg

DRUGS (9)
  1. NAROPIN [Suspect]
     Indication: PROCEDURAL PAIN
     Route: 008
     Dates: start: 20061007
  2. NAROPIN [Suspect]
     Route: 008
  3. NAROPIN [Suspect]
     Route: 008
     Dates: end: 20061008
  4. SUBLIMAZE PRESERVATIVE FREE [Suspect]
     Dosage: 2 AMPOULES (2 ML) OF 50 UG/ML MIXED WITH NAROPIN POLYBAG 200 ML
     Route: 008
     Dates: start: 20061007
  5. SUBLIMAZE PRESERVATIVE FREE [Suspect]
     Dosage: 2 AMPOULES (2 ML) OF 50 UG/ML MIXED WITH NAROPIN POLYBAG 200 ML
     Route: 008
     Dates: end: 20061008
  6. CEFUROXIME [Concomitant]
  7. TORADOL [Concomitant]
     Dosage: FORMULATION: PANADO COCTAIL
     Route: 042
  8. MORPHINE [Concomitant]
  9. FRAXIPARINE [Concomitant]
     Dosage: STARTED }18 HOURS AFTER BLOCK

REACTIONS (1)
  - DELAYED RECOVERY FROM ANAESTHESIA [None]
